FAERS Safety Report 7435875-5 (Version None)
Quarter: 2011Q2

REPORT INFORMATION
  Report Type: 
  Country: None (occurrence: None)
  Receive Date: 20110425
  Receipt Date: 20110419
  Transmission Date: 20111010
  Serious: Yes (Death, Life-Threatening)
  Sender: FDA-Public Use
  Company Number: US-ASTRAZENECA-2010SE58849

PATIENT
  Age: 101 Year
  Sex: Male
  Weight: 77.1 kg

DRUGS (1)
  1. ZOLADEX [Suspect]
     Indication: PROSTATE CANCER
     Route: 058
     Dates: start: 19950101, end: 19950101

REACTIONS (2)
  - PROSTATE CANCER [None]
  - MYOCARDIAL INFARCTION [None]
